FAERS Safety Report 4751889-8 (Version None)
Quarter: 2005Q3

REPORT INFORMATION
  Report Type: 
  Country: None (occurrence: None)
  Receive Date: 20050822
  Receipt Date: 20050511
  Transmission Date: 20060218
  Serious: No
  Sender: FDA-Public Use
  Company Number: PHEH2005US05356

PATIENT
  Age: 39 Year
  Sex: Female

DRUGS (1)
  1. ZELNORM [Suspect]
     Dosage: 6 MG, BID, ORAL
     Route: 048
     Dates: start: 20050509

REACTIONS (2)
  - INFLUENZA LIKE ILLNESS [None]
  - PRURITUS [None]
